FAERS Safety Report 21202987 (Version 2)
Quarter: 2022Q3

REPORT INFORMATION
  Report Type: Spontaneous
  Country: US (occurrence: US)
  Receive Date: 20220811
  Receipt Date: 20220902
  Transmission Date: 20221026
  Serious: No
  Sender: FDA-Public Use
  Company Number: US-BRISTOL-MYERS SQUIBB COMPANY-2022-088927

PATIENT
  Age: 73 Year
  Sex: Female

DRUGS (1)
  1. REVLIMID [Suspect]
     Active Substance: LENALIDOMIDE
     Indication: Plasma cell myeloma
     Dosage: TAKE 1 CAPSULE MOUTH WHOLE WITH WATER AT THE SAME TIME DAILY ON DAYS 1 - 21 EACH 28 DAY CYCLE
     Route: 048
     Dates: start: 20220719

REACTIONS (1)
  - Dysphagia [Unknown]
